FAERS Safety Report 8216474-4 (Version None)
Quarter: 2012Q1

REPORT INFORMATION
  Report Type: 
  Country: None (occurrence: None)
  Receive Date: 20120316
  Receipt Date: 20120307
  Transmission Date: 20120608
  Serious: Yes (Hospitalization)
  Sender: FDA-Public Use
  Company Number: US-SHIRE-ALL1-2012-01369

PATIENT
  Age: 13 Year
  Sex: Female

DRUGS (5)
  1. OMEPRAZOLE [Suspect]
     Dosage: 20 MG, 1X/DAY:QD
     Route: 065
  2. MESALAMINE [Suspect]
     Indication: CROHN'S DISEASE
     Dosage: UNK, UNKNOWN
     Route: 065
  3. OMEPRAZOLE [Suspect]
     Indication: CROHN'S DISEASE
     Dosage: UNK, UNKNOWN
     Route: 065
  4. MERCAPTOPURINE [Suspect]
     Indication: CROHN'S DISEASE
     Dosage: UNK, UNKNOWN
     Route: 065
  5. BUDESONIDE [Concomitant]
     Indication: CROHN'S DISEASE
     Dosage: UNK, UNKNOWN
     Route: 065

REACTIONS (9)
  - VIRAL INFECTION [None]
  - CROHN'S DISEASE [None]
  - ESCHERICHIA SEPSIS [None]
  - DRUG INTERACTION [None]
  - PANCYTOPENIA [None]
  - OFF LABEL USE [None]
  - DIZZINESS [None]
  - FATIGUE [None]
  - ALOPECIA [None]
